FAERS Safety Report 23572803 (Version 1)
Quarter: 2024Q1

REPORT INFORMATION
  Report Type: Spontaneous
  Country: US (occurrence: US)
  Receive Date: 20240227
  Receipt Date: 20240227
  Transmission Date: 20240410
  Serious: No
  Sender: FDA-Public Use
  Company Number: US-PRIMUS-2024-US-000825

PATIENT
  Age: 78 Year
  Sex: Male

DRUGS (1)
  1. SERNIVO [Suspect]
     Active Substance: BETAMETHASONE DIPROPIONATE
     Indication: Product used for unknown indication
     Dosage: SPRAY 1 PUMP TOPICALLY TO AFFECTED AREA OF SKIN ONCE DAILY
     Route: 061

REACTIONS (3)
  - Application site pain [Unknown]
  - Application site irritation [Unknown]
  - Inappropriate schedule of product administration [Unknown]
